FAERS Safety Report 18218435 (Version 2)
Quarter: 2021Q1

REPORT INFORMATION
  Report Type: Spontaneous
  Country: US (occurrence: US)
  Receive Date: 20200901
  Receipt Date: 20210131
  Transmission Date: 20210419
  Serious: Yes (Hospitalization, Disabling, Other)
  Sender: FDA-Public Use
  Company Number: US-NAPPMUNDI-USA-2020-0150997

PATIENT
  Sex: Female

DRUGS (4)
  1. MORPHINE SULFATE (SIMILAR TO NDA 19?516) [Suspect]
     Active Substance: MORPHINE SULFATE
     Indication: PAIN
     Dosage: 40 MG, QID
     Route: 048
     Dates: start: 2011, end: 2012
  2. PERCOCET [Suspect]
     Active Substance: ACETAMINOPHEN\OXYCODONE HYDROCHLORIDE
     Indication: BREAKTHROUGH PAIN
     Dosage: UNK
     Route: 048
     Dates: start: 2011, end: 2012
  3. TRAMADOL. [Suspect]
     Active Substance: TRAMADOL
     Indication: PAIN
     Dosage: UNK
     Route: 048
     Dates: start: 2013
  4. XANAX [Suspect]
     Active Substance: ALPRAZOLAM
     Indication: PRODUCT USED FOR UNKNOWN INDICATION
     Dosage: 0.5 MG, TID?QID
     Route: 048
     Dates: start: 2011, end: 2012

REACTIONS (14)
  - Hallucination [Unknown]
  - Dyspnoea [Not Recovered/Not Resolved]
  - Impaired work ability [Unknown]
  - Quality of life decreased [Unknown]
  - Post-traumatic stress disorder [Not Recovered/Not Resolved]
  - Agoraphobia [Unknown]
  - Poisoning [Unknown]
  - Impaired driving ability [Recovered/Resolved]
  - Drug dependence [Unknown]
  - Memory impairment [Not Recovered/Not Resolved]
  - Fear [Unknown]
  - Unevaluable event [Unknown]
  - Hypertrophy [Unknown]
  - Disturbance in attention [Not Recovered/Not Resolved]

NARRATIVE: CASE EVENT DATE: 2011
